FAERS Safety Report 15977046 (Version 1)
Quarter: 2019Q1

REPORT INFORMATION
  Report Type: Spontaneous
  Country: US (occurrence: US)
  Receive Date: 20190218
  Receipt Date: 20190218
  Transmission Date: 20190418
  Serious: Yes (Other)
  Sender: FDA-Public Use
  Company Number: US-MYLANLABS-2019M1013697

PATIENT

DRUGS (1)
  1. CLONIDINE TRANSDERMAL SYSTEM [Suspect]
     Active Substance: CLONIDINE
     Indication: HYPERTENSION
     Dosage: 0.2 MILLIGRAM, QD
     Route: 062
     Dates: start: 20190206

REACTIONS (6)
  - Peripheral swelling [Unknown]
  - Application site vesicles [Unknown]
  - Dermal absorption impaired [Unknown]
  - Application site pruritus [Not Recovered/Not Resolved]
  - Blood pressure increased [Recovered/Resolved]
  - Drug effect decreased [Unknown]

NARRATIVE: CASE EVENT DATE: 20190210
